FAERS Safety Report 12383135 (Version 3)
Quarter: 2017Q2

REPORT INFORMATION
  Report Type: Spontaneous
  Country: DK (occurrence: DK)
  Receive Date: 20160518
  Receipt Date: 20170403
  Transmission Date: 20170830
  Serious: Yes (Other)
  Sender: FDA-Public Use
  Company Number: DK-ELI_LILLY_AND_COMPANY-DK201605004222

PATIENT
  Age: 69 Year
  Sex: Female

DRUGS (11)
  1. FORSTEO [Suspect]
     Active Substance: TERIPARATIDE
     Indication: SPINAL COMPRESSION FRACTURE
     Dosage: UNK, UNKNOWN
     Route: 058
     Dates: start: 20150526, end: 201508
  2. SINEMET [Concomitant]
     Active Substance: CARBIDOPA\LEVODOPA
     Indication: PARKINSON^S DISEASE
     Dosage: 1 DF, UNK
     Route: 048
     Dates: start: 20150702, end: 20150720
  3. NEUPRO [Concomitant]
     Active Substance: ROTIGOTINE
     Indication: PARKINSON^S DISEASE
     Dosage: 2 MG, QD
     Route: 062
     Dates: start: 20150813, end: 20151217
  4. FORSTEO [Suspect]
     Active Substance: TERIPARATIDE
     Indication: OSTEOPOROSIS
  5. VIBEDEN [Concomitant]
     Indication: VITAMIN B12 DEFICIENCY
     Dosage: 1 DF, OTHER
     Route: 030
  6. OFTAGEL [Concomitant]
     Active Substance: CARBOMER
     Indication: DRY EYE
     Dosage: 2.5 MG, PRN
     Dates: start: 20150507
  7. ELDEPRYL [Concomitant]
     Active Substance: SELEGILINE HYDROCHLORIDE
     Indication: PARKINSON^S DISEASE
     Dosage: 5 MG, UNK
     Route: 048
     Dates: start: 20150720, end: 20151126
  8. PINEX                              /00020001/ [Concomitant]
     Active Substance: ACETAMINOPHEN
     Indication: PAIN
     Dosage: 1000 MG, PRN
     Route: 048
     Dates: start: 20141217
  9. AZILECT [Concomitant]
     Active Substance: RASAGILINE MESYLATE
     Indication: PARKINSON^S DISEASE
     Dosage: 1 MG, UNK
     Route: 048
     Dates: start: 20150702, end: 20150720
  10. ROPINIROL KRKA [Concomitant]
     Indication: PARKINSON^S DISEASE
     Dosage: 8 MG, UNK
     Route: 048
     Dates: start: 20150702, end: 20151217
  11. SAROTEN [Concomitant]
     Active Substance: AMITRIPTYLINE
     Indication: NEURITIS
     Dosage: 10 MG, UNK
     Route: 048
     Dates: start: 20130221, end: 20151217

REACTIONS (5)
  - Parkinsonism [Not Recovered/Not Resolved]
  - Muscle spasms [Unknown]
  - Pain in extremity [Unknown]
  - Abasia [Unknown]
  - Sleep disorder [Unknown]

NARRATIVE: CASE EVENT DATE: 201506
